FAERS Safety Report 9688777 (Version 2)
Quarter: 2013Q4

REPORT INFORMATION
  Report Type: Spontaneous
  Country: GB (occurrence: GB)
  Receive Date: 20131114
  Receipt Date: 20131114
  Transmission Date: 20140711
  Serious: Yes (Death, Hospitalization)
  Sender: FDA-Public Use
  Company Number: GB-TEVA-419600ISR

PATIENT
  Age: 79 Year
  Sex: Female

DRUGS (2)
  1. CO-AMOXICLAV [Suspect]
     Dosage: 2.4 GRAM DAILY; RENAL DOSING
     Route: 042
     Dates: start: 20130618, end: 20130620
  2. CO-AMOXICLAV [Suspect]
     Dosage: 1875 MILLIGRAM DAILY;
     Route: 048
     Dates: start: 20130621, end: 20130629

REACTIONS (2)
  - Cardiac arrest [Fatal]
  - Jaundice cholestatic [Not Recovered/Not Resolved]
